FAERS Safety Report 18152754 (Version 2)
Quarter: 2020Q3

REPORT INFORMATION
  Report Type: Spontaneous
  Country: JP (occurrence: JP)
  Receive Date: 20200814
  Receipt Date: 20200819
  Transmission Date: 20201103
  Serious: Yes (Hospitalization, Other)
  Sender: FDA-Public Use
  Company Number: JP-PFIZER INC-2020314518

PATIENT
  Age: 72 Year
  Sex: Female

DRUGS (2)
  1. GEMCITABINE HYDROCHLORIDE. [Suspect]
     Active Substance: GEMCITABINE HYDROCHLORIDE
     Indication: PANCREATIC CARCINOMA
     Dosage: 800 MG/M2, CYCLIC (FREQ: CYCLICAL (CYCLICAL)) (ON DAYS 1, 8, AND 15 OF A 4?WEEK CYCLE)
  2. GEMCITABINE HYDROCHLORIDE. [Suspect]
     Active Substance: GEMCITABINE HYDROCHLORIDE
     Dosage: 1000 MG/M2, CYCLIC (FREQ: CYCLICAL (CYCLICAL)) (DAYS 1, 8, AND 15 OF A 4?WEEK CYCLE)

REACTIONS (2)
  - Recall phenomenon [Recovering/Resolving]
  - Gastritis [Recovering/Resolving]
